FAERS Safety Report 4719760-5 (Version None)
Quarter: 2005Q3

REPORT INFORMATION
  Report Type: 
  Country: None (occurrence: None)
  Receive Date: 20050721
  Receipt Date: 20040720
  Transmission Date: 20060218
  Serious: No
  Sender: FDA-Public Use
  Company Number: US-GLAXOSMITHKLINE-A0519029A

PATIENT
  Age: 69 Year
  Sex: Female

DRUGS (6)
  1. AVANDIA [Suspect]
     Dosage: 4MG PER DAY
     Route: 048
     Dates: start: 20040708
  2. GLUCOPHAGE [Concomitant]
  3. GLUCOTROL [Concomitant]
  4. COZAAR [Concomitant]
  5. NEXIUM [Concomitant]
  6. ASPIRIN [Concomitant]

REACTIONS (1)
  - MYALGIA [None]
